FAERS Safety Report 7368806-7 (Version None)
Quarter: 2011Q1

REPORT INFORMATION
  Report Type: 
  Country: None (occurrence: None)
  Receive Date: 20110318
  Receipt Date: 20110318
  Transmission Date: 20110831
  Serious: No
  Sender: FDA-Public Use
  Company Number: None

PATIENT
  Sex: Female

DRUGS (4)
  1. TOPIRAMATE [Suspect]
     Indication: MIGRAINE PROPHYLAXIS
     Dosage: 50MG TID PO
     Route: 048
     Dates: start: 20101120
  2. IMITREX [Concomitant]
  3. CITALOPRAM HYDROBROMIDE [Concomitant]
  4. FLONASE [Concomitant]

REACTIONS (4)
  - DEPRESSION [None]
  - ANXIETY [None]
  - CONDITION AGGRAVATED [None]
  - PRODUCT SUBSTITUTION ISSUE [None]
